FAERS Safety Report 8256454-6 (Version None)
Quarter: 2012Q2

REPORT INFORMATION
  Report Type: 
  Country: None (occurrence: None)
  Receive Date: 20120403
  Receipt Date: 20120330
  Transmission Date: 20120825
  Serious: No
  Sender: FDA-Public Use
  Company Number: US-PFIZER INC-2012081932

PATIENT
  Sex: Female
  Weight: 90.703 kg

DRUGS (4)
  1. ZOLOFT [Suspect]
     Dosage: UNK
     Dates: start: 20120301
  2. HYDROCODONE BITARTRATE [Suspect]
     Indication: FIBROMYALGIA
     Dosage: UNK
  3. TEMAZEPAM [Concomitant]
     Indication: SLEEP DISORDER
     Dosage: 60 MG, DAILY
  4. ZOLOFT [Suspect]
     Indication: POST-TRAUMATIC STRESS DISORDER
     Dosage: UNK

REACTIONS (4)
  - ANALGESIC THERAPY [None]
  - THERAPEUTIC RESPONSE UNEXPECTED [None]
  - PRODUCT SUBSTITUTION ISSUE [None]
  - DRUG INEFFECTIVE [None]
